FAERS Safety Report 24417416 (Version 2)
Quarter: 2024Q4

REPORT INFORMATION
  Report Type: Spontaneous
  Country: JP (occurrence: JP)
  Receive Date: 20241009
  Receipt Date: 20241017
  Transmission Date: 20250115
  Serious: Yes (Other)
  Sender: SANOFI AVENTIS
  Company Number: JP-MLMSERVICE-20241001-PI207708-00060-2

PATIENT
  Age: 75 Year
  Sex: Female

DRUGS (6)
  1. AZITHROMYCIN [Suspect]
     Active Substance: AZITHROMYCIN
     Indication: Mycobacterium avium complex infection
     Dosage: 250 MG, QD, STARTED AND MAINTAINED FOR 3 AND A HALF YEARS
  2. AZITHROMYCIN [Suspect]
     Active Substance: AZITHROMYCIN
     Indication: Lung disorder
  3. RIFAMPIN [Suspect]
     Active Substance: RIFAMPIN
     Indication: Mycobacterium avium complex infection
     Dosage: 150 MG, QD, MAINTAINED FOR 3 AND A HALF YEARS WITH A DOSE CHANGE OF RIF (300 MG ONCE DAILY) 1 YEAR A
  4. RIFAMPIN [Suspect]
     Active Substance: RIFAMPIN
     Indication: Lung disorder
     Dosage: 300 MG, QD, MAINTAINED FOR 3 AND A HALF YEARS WITH A DOSE CHANGE OF RIF (300 MG ONCE DAILY) 1 YEAR A
  5. ETHAMBUTOL [Suspect]
     Active Substance: ETHAMBUTOL HYDROCHLORIDE
     Indication: Mycobacterium avium complex infection
     Dosage: 500 MG, BID, MAINTAINED FOR 3 AND A HALF YEARS
  6. ETHAMBUTOL [Suspect]
     Active Substance: ETHAMBUTOL HYDROCHLORIDE
     Indication: Lung disorder

REACTIONS (4)
  - Pneumatosis intestinalis [Recovering/Resolving]
  - Diarrhoea [Recovering/Resolving]
  - Abdominal tenderness [Recovering/Resolving]
  - Intestinal cyst [Recovering/Resolving]
